FAERS Safety Report 19933024 (Version 1)
Quarter: 2021Q4

REPORT INFORMATION
  Report Type: Report from Study
  Country: US (occurrence: US)
  Receive Date: 20211008
  Receipt Date: 20211008
  Transmission Date: 20220303
  Serious: Yes (Death, Hospitalization, Other)
  Sender: FDA-Public Use
  Company Number: US-SA-2017SA246142

PATIENT
  Age: 72 Year
  Sex: Female

DRUGS (2)
  1. ALEMTUZUMAB [Suspect]
     Active Substance: ALEMTUZUMAB
     Indication: Multiple sclerosis
     Dosage: 12 MG,QD
     Route: 041
     Dates: start: 20170626, end: 20170628
  2. ALEMTUZUMAB [Suspect]
     Active Substance: ALEMTUZUMAB
     Dosage: 12 MG,QD
     Route: 041
     Dates: start: 20160516, end: 20160520

REACTIONS (14)
  - Pulmonary thrombosis [Fatal]
  - Thrombosis [Fatal]
  - Pneumonia [Fatal]
  - Aspiration [Fatal]
  - Asthenia [Fatal]
  - Influenza [Fatal]
  - Death [Fatal]
  - Hospitalisation [Unknown]
  - Unevaluable event [Unknown]
  - Urinary tract infection [Not Recovered/Not Resolved]
  - Asthenia [Not Recovered/Not Resolved]
  - Vomiting [Not Recovered/Not Resolved]
  - Abdominal pain [Not Recovered/Not Resolved]
  - Constipation [Not Recovered/Not Resolved]

NARRATIVE: CASE EVENT DATE: 20170101
